FAERS Safety Report 6292605-0 (Version None)
Quarter: 2009Q3

REPORT INFORMATION
  Report Type: 
  Country: None (occurrence: None)
  Receive Date: 20090729
  Receipt Date: 20090720
  Transmission Date: 20100115
  Serious: Yes (Other)
  Sender: FDA-Public Use
  Company Number: ADR10512009

PATIENT
  Sex: Male

DRUGS (10)
  1. AMLODIPINE [Suspect]
     Indication: HYPERTENSION
     Dosage: 5MG ORAL
     Route: 048
     Dates: start: 20080115
  2. AMITRIPTYLINE HYDROCHLORIDE [Concomitant]
  3. ASPIRIN [Concomitant]
  4. ATORVASTATIN CALCIUM [Concomitant]
  5. BISACODYL [Concomitant]
  6. FUROSEMIDE [Concomitant]
  7. LOSARTAN POTASSIUM [Concomitant]
  8. NOVOMIX (INSULIN ASPART) [Concomitant]
  9. OMACOR (OMEGA-3-ACID ETHYL ESTERS 90%, OMEGA-3 POLYUNSATURATES 85% CON [Concomitant]
  10. SODIUM BICARBONATE [Concomitant]

REACTIONS (4)
  - BLOOD GLUCOSE INCREASED [None]
  - GLYCOSYLATED HAEMOGLOBIN INCREASED [None]
  - MALAISE [None]
  - PALPITATIONS [None]
